FAERS Safety Report 8052721-X (Version None)
Quarter: 2012Q1

REPORT INFORMATION
  Report Type: 
  Country: None (occurrence: None)
  Receive Date: 20120111
  Receipt Date: 20110302
  Transmission Date: 20120608
  Serious: No
  Sender: FDA-Public Use
  Company Number: AECAN201100042

PATIENT
  Age: 66 Year
  Sex: Female

DRUGS (1)
  1. ALBUMINAR-25 [Suspect]
     Indication: PNEUMONIA
     Dosage: 50 GM, TOTAL, IV
     Route: 042
     Dates: start: 20110127, end: 20110127

REACTIONS (5)
  - PYREXIA [None]
  - TACHYCARDIA [None]
  - CHILLS [None]
  - BLOOD PRESSURE DECREASED [None]
  - BLOOD PRESSURE FLUCTUATION [None]
